FAERS Safety Report 8951608 (Version 1)
Quarter: 2012Q4

REPORT INFORMATION
  Report Type: 
  Country: US (occurrence: US)
  Receive Date: 20121204
  Receipt Date: 20121204
  Transmission Date: 20130627
  Serious: No
  Sender: FDA-Public Use
  Company Number: US-009507513-1212USA001217

PATIENT
  Sex: Female

DRUGS (2)
  1. CLARITIN [Suspect]
     Indication: PRODUCT USED FOR UNKNOWN INDICATION
     Dosage: 10 mg, qam
     Route: 048
     Dates: start: 20121114
  2. CLARITIN [Suspect]
     Dosage: 10 mg, Once
     Route: 048
     Dates: start: 20121114

REACTIONS (3)
  - Dizziness [Unknown]
  - Somnolence [Unknown]
  - Accidental overdose [Unknown]
